FAERS Safety Report 9176905 (Version 1)
Quarter: 2013Q1

REPORT INFORMATION
  Report Type: Spontaneous
  Country: US (occurrence: US)
  Receive Date: 20130321
  Receipt Date: 20130321
  Transmission Date: 20140127
  Serious: Yes (Other)
  Sender: FDA-Public Use
  Company Number: PHEH2013US006400

PATIENT
  Sex: Female

DRUGS (7)
  1. DIOVAN [Suspect]
     Dosage: UNK UKN, UNK
  2. APIDRA [Concomitant]
     Dosage: UNK UKN, UNK
  3. PANCREAZE                          /00620701/ [Concomitant]
     Dosage: UNK UKN, UNK
  4. CRESTOR [Concomitant]
     Dosage: UNK UKN, UNK
  5. RANITIDINE [Concomitant]
     Dosage: UNK UKN, UNK
  6. AMLODIPINE [Concomitant]
     Dosage: UNK UKN, UNK
  7. VENTOLIN                           /00942701/ [Concomitant]
     Dosage: UNK UKN, UNK

REACTIONS (1)
  - Blindness unilateral [Unknown]
